FAERS Safety Report 4497414-0 (Version None)
Quarter: 2004Q4

REPORT INFORMATION
  Report Type: 
  Country: None (occurrence: None)
  Receive Date: 20041104
  Receipt Date: 20041022
  Transmission Date: 20050328
  Serious: Yes (Other)
  Sender: FDA-Public Use
  Company Number: 2004082360

PATIENT
  Sex: 0

DRUGS (4)
  1. NEURONTIN [Suspect]
     Indication: PAIN
     Dates: start: 20031101, end: 20040101
  2. ALL OTHER NON-THERAPEUTIC PRODUCTS (ALL OTHER THERAPEUTIC PRODUCTS) [Suspect]
     Indication: ILL-DEFINED DISORDER
     Dosage: INHALATION
     Route: 055
  3. DIAZEPAM [Concomitant]
  4. ALL OTHER THERAPEUTIC PRODUCTS (ALL OTHER THERAPEUTIC PRODUCTS) [Concomitant]

REACTIONS (4)
  - ABDOMINAL PAIN UPPER [None]
  - CHEMICAL ABUSER [None]
  - SUICIDE ATTEMPT [None]
  - WEIGHT DECREASED [None]
